FAERS Safety Report 18908452 (Version 4)
Quarter: 2022Q1

REPORT INFORMATION
  Report Type: Spontaneous
  Country: IE (occurrence: IE)
  Receive Date: 20210218
  Receipt Date: 20220203
  Transmission Date: 20220423
  Serious: Yes (Other)
  Sender: FDA-Public Use
  Company Number: IE-ADVANZ PHARMA-202102001316

PATIENT

DRUGS (14)
  1. PREDNISOLONE [Suspect]
     Active Substance: PREDNISOLONE
     Indication: B precursor type acute leukaemia
     Dosage: UNK
  2. PREDNISOLONE [Suspect]
     Active Substance: PREDNISOLONE
     Dosage: UNK (CYCLICAL)
     Dates: start: 2017
  3. METHOTREXATE [Suspect]
     Active Substance: METHOTREXATE
     Indication: B precursor type acute leukaemia
     Dosage: UNK
  4. METHOTREXATE [Suspect]
     Active Substance: METHOTREXATE
     Dosage: UNK (CYCLICAL)
     Dates: start: 2017
  5. VINCRISTINE [Suspect]
     Active Substance: VINCRISTINE
     Indication: B precursor type acute leukaemia
     Dosage: UNK
  6. VINCRISTINE [Suspect]
     Active Substance: VINCRISTINE
     Dosage: UNK (CYCLICAL)
     Dates: start: 2017
  7. PEGASPARGASE [Suspect]
     Active Substance: PEGASPARGASE
     Indication: B precursor type acute leukaemia
     Dosage: UNK
  8. PEGASPARGASE [Suspect]
     Active Substance: PEGASPARGASE
     Dosage: UNK (CYCLICAL)
     Dates: start: 2017
  9. MERCAPTOPURINE [Suspect]
     Active Substance: MERCAPTOPURINE
     Indication: B precursor type acute leukaemia
     Dosage: UNK
  10. MERCAPTOPURINE [Suspect]
     Active Substance: MERCAPTOPURINE
     Dosage: UNK (CYCLICAL)
     Dates: start: 2017
  11. CYCLOPHOSPHAMIDE [Suspect]
     Active Substance: CYCLOPHOSPHAMIDE
     Indication: B precursor type acute leukaemia
     Dosage: UNK
  12. CYCLOPHOSPHAMIDE [Suspect]
     Active Substance: CYCLOPHOSPHAMIDE
     Dosage: UNK (CYCLICAL)
     Dates: start: 2017
  13. CYTARABINE [Suspect]
     Active Substance: CYTARABINE
     Indication: B precursor type acute leukaemia
     Dosage: UNK
  14. CYTARABINE [Suspect]
     Active Substance: CYTARABINE
     Dates: start: 2017

REACTIONS (3)
  - Acral lentiginous melanoma [Unknown]
  - Lentigo [Unknown]
  - Rash [Unknown]

NARRATIVE: CASE EVENT DATE: 20200101
